FAERS Safety Report 8218467-X (Version None)
Quarter: 2012Q1

REPORT INFORMATION
  Report Type: 
  Country: None (occurrence: None)
  Receive Date: 20120319
  Receipt Date: 20120306
  Transmission Date: 20120608
  Serious: Yes (Hospitalization, Other)
  Sender: FDA-Public Use
  Company Number: US-ELI_LILLY_AND_COMPANY-US201103002783

PATIENT
  Sex: Female

DRUGS (11)
  1. HYDROCHLOROTHIAZIDE [Concomitant]
  2. SIMVASTATIN [Concomitant]
     Indication: BLOOD CHOLESTEROL
  3. LEVOTHYROXINE SODIUM [Concomitant]
     Indication: THYROID DISORDER
  4. VITAMIN B-12 [Concomitant]
  5. PRESERVISION LUTEIN EYE VITA.+MIN.SUP.SOFTG. [Concomitant]
     Indication: MACULAR DEGENERATION
  6. FORTEO [Suspect]
     Indication: OSTEOPOROSIS
     Dosage: 20 UG, DAILY (1/D)
     Dates: start: 20101201, end: 20110303
  7. FORTEO [Suspect]
     Dosage: 20 UG, QD
  8. OMEPRAZOLE [Concomitant]
  9. AMITRIPTYLINE HCL [Concomitant]
  10. METOPROLOL SUCCINATE [Concomitant]
     Indication: HYPERTENSION
  11. VITAMIN D [Concomitant]

REACTIONS (2)
  - MEDICATION ERROR [None]
  - ATRIAL FIBRILLATION [None]
